FAERS Safety Report 18485715 (Version 2)
Quarter: 2020Q4

REPORT INFORMATION
  Report Type: Spontaneous
  Country: US (occurrence: US)
  Receive Date: 20201110
  Receipt Date: 20201130
  Transmission Date: 20210114
  Serious: Yes (Other)
  Sender: FDA-Public Use
  Company Number: US-PFIZER INC-2019450666

PATIENT
  Age: 69 Year
  Sex: Female
  Weight: 43.54 kg

DRUGS (12)
  1. REVATIO [Suspect]
     Active Substance: SILDENAFIL CITRATE
     Dosage: 20 MG, 3X/DAY
  2. TYVASO [Suspect]
     Active Substance: TREPROSTINIL
     Dosage: 30 UG (30 MICROGRAM, INHALATION)
     Route: 055
     Dates: start: 2020
  3. TADALAFIL. [Suspect]
     Active Substance: TADALAFIL
     Dosage: UNK
  4. TYVASO [Suspect]
     Active Substance: TREPROSTINIL
     Indication: PULMONARY ARTERIAL HYPERTENSION
     Dosage: UNK
     Dates: start: 20200922
  5. REVATIO [Suspect]
     Active Substance: SILDENAFIL CITRATE
     Indication: PULMONARY HYPERTENSION
     Dosage: 40 MG, 3X/DAY
     Route: 048
  6. TYVASO [Suspect]
     Active Substance: TREPROSTINIL
     Dosage: 36 UG (36 MICROGRAM, INHALATION)
     Route: 055
     Dates: start: 2020
  7. TYVASO [Suspect]
     Active Substance: TREPROSTINIL
     Dosage: UNK
     Route: 055
     Dates: start: 2020
  8. TYVASO [Suspect]
     Active Substance: TREPROSTINIL
     Dosage: UNK
     Route: 055
     Dates: start: 2020
  9. TYVASO [Suspect]
     Active Substance: TREPROSTINIL
     Dosage: 42 UG, 4X/DAY (42 MICROGRAM, QID (FOUR TIMES A DAY), INHALATION)
     Route: 055
     Dates: start: 2020
  10. TYVASO [Suspect]
     Active Substance: TREPROSTINIL
     Indication: PULMONARY HYPERTENSION
     Dosage: UNK
     Dates: start: 202009
  11. TYVASO [Suspect]
     Active Substance: TREPROSTINIL
     Dosage: UNK, 4X/DAY (18-54 MICROGRAM, QID (FOUR TIMES A DAY), INHALATION)
     Route: 055
     Dates: start: 2020
  12. TYVASO [Suspect]
     Active Substance: TREPROSTINIL
     Dosage: 18 UG, 4X/DAY (18 MICROGRAM, QID (FOUR TIMES A DAY), INHALATION)
     Route: 055
     Dates: start: 2020

REACTIONS (22)
  - Pulmonary hypertension [Unknown]
  - Back pain [Unknown]
  - Headache [Unknown]
  - Constipation [Unknown]
  - Onychomycosis [Unknown]
  - Wheezing [Unknown]
  - Intracardiac pressure increased [Unknown]
  - Off label use [Unknown]
  - Asthenia [Unknown]
  - Gastrooesophageal reflux disease [Unknown]
  - Productive cough [Unknown]
  - Cough [Unknown]
  - Depressed mood [Unknown]
  - Oxygen saturation decreased [Unknown]
  - Chest discomfort [Unknown]
  - Memory impairment [Unknown]
  - Dyspnoea exertional [Unknown]
  - Product use issue [Unknown]
  - Flushing [Unknown]
  - Nausea [Unknown]
  - Fatigue [Unknown]
  - Dyspnoea [Unknown]

NARRATIVE: CASE EVENT DATE: 2020
